FAERS Safety Report 4632488-5 (Version None)
Quarter: 2005Q2

REPORT INFORMATION
  Report Type: 
  Country: None (occurrence: None)
  Receive Date: 20050411
  Receipt Date: 20050401
  Transmission Date: 20051028
  Serious: Yes (Death, Other)
  Sender: FDA-Public Use
  Company Number: US-ABBOTT-05P-163-0296109-00

PATIENT
  Age: 19 Year
  Sex: Male

DRUGS (3)
  1. VALPROIC ACID [Suspect]
     Indication: DRUG USE FOR UNKNOWN INDICATION
     Route: 048
  2. RISPERIDONE [Suspect]
     Indication: DRUG USE FOR UNKNOWN INDICATION
     Route: 048
  3. VENLAFAXINE HCL [Suspect]
     Indication: DRUG USE FOR UNKNOWN INDICATION
     Route: 048

REACTIONS (13)
  - BLOOD PRESSURE SYSTOLIC INCREASED [None]
  - BRAIN DEATH [None]
  - BRAIN HERNIATION [None]
  - BRAIN OEDEMA [None]
  - DRUG LEVEL INCREASED [None]
  - ENCEPHALOPATHY [None]
  - HYPERAMMONAEMIA [None]
  - INTENTIONAL MISUSE [None]
  - LETHARGY [None]
  - MENTAL STATUS CHANGES [None]
  - POSTURING [None]
  - PUPIL FIXED [None]
  - TACHYCARDIA [None]
